FAERS Safety Report 23572535 (Version 1)
Quarter: 2024Q1

REPORT INFORMATION
  Report Type: Spontaneous
  Country: US (occurrence: US)
  Receive Date: 20240227
  Receipt Date: 20240227
  Transmission Date: 20240409
  Serious: No
  Sender: FDA-Public Use
  Company Number: US-AVADEL CNS PHARMACEUTICALS, LLC-2023AVA00354

PATIENT
  Age: 46 Year
  Sex: Female

DRUGS (6)
  1. LUMRYZ [Suspect]
     Active Substance: SODIUM OXYBATE
     Indication: Narcolepsy
     Dosage: 9 G, ONCE NIGHTLY
     Dates: start: 20231020, end: 20231026
  2. LUMRYZ [Suspect]
     Active Substance: SODIUM OXYBATE
     Indication: Cataplexy
  3. VITAMIN D2 [Concomitant]
     Active Substance: ERGOCALCIFEROL
  4. XANAX [Concomitant]
     Active Substance: ALPRAZOLAM
  5. BUSPIRONE HCL [Concomitant]
     Active Substance: BUSPIRONE HYDROCHLORIDE
  6. RITALIN [Concomitant]
     Active Substance: METHYLPHENIDATE HYDROCHLORIDE

REACTIONS (3)
  - Hypertension [Recovered/Resolved]
  - Somnambulism [Recovered/Resolved]
  - Drug dose titration not performed [Recovered/Resolved]

NARRATIVE: CASE EVENT DATE: 20231001
